FAERS Safety Report 7995545-1 (Version None)
Quarter: 2011Q4

REPORT INFORMATION
  Report Type: 
  Country: None (occurrence: None)
  Receive Date: 20111220
  Receipt Date: 20111215
  Transmission Date: 20120403
  Serious: No
  Sender: FDA-Public Use
  Company Number: US-PFIZER INC-2011306183

PATIENT
  Sex: Female
  Weight: 68.027 kg

DRUGS (5)
  1. DEPO-PROVERA [Suspect]
     Indication: OFF LABEL USE
     Dosage: UNK
     Dates: start: 20080901
  2. DEPO-PROVERA [Suspect]
     Indication: MOOD SWINGS
  3. DEPO-PROVERA [Suspect]
     Indication: PREMENSTRUAL SYNDROME
  4. DEPO-PROVERA [Suspect]
     Indication: ACNE
  5. DEPO-PROVERA [Suspect]
     Indication: MUSCLE SPASMS

REACTIONS (2)
  - INCORRECT DOSE ADMINISTERED [None]
  - DRUG INEFFECTIVE FOR UNAPPROVED INDICATION [None]
